FAERS Safety Report 7564701-9 (Version None)
Quarter: 2011Q2

REPORT INFORMATION
  Report Type: 
  Country: None (occurrence: None)
  Receive Date: 20110622
  Receipt Date: 20100914
  Transmission Date: 20111010
  Serious: Yes (Death)
  Sender: FDA-Public Use
  Company Number: US-MYLANLABS-2010S1016845

PATIENT
  Age: 62 Year
  Sex: Male
  Weight: 99.79 kg

DRUGS (8)
  1. FLOMAX [Concomitant]
  2. ASPIRIN [Concomitant]
  3. DOCUSATE [Concomitant]
  4. CLOZAPINE [Suspect]
     Indication: SCHIZOPHRENIA
  5. DIVALPROEX SODIUM [Concomitant]
  6. CLOZAPINE [Suspect]
     Indication: SCHIZOAFFECTIVE DISORDER
  7. FUROSEMIDE [Concomitant]
  8. LOVASTATIN [Concomitant]

REACTIONS (1)
  - CHRONIC OBSTRUCTIVE PULMONARY DISEASE [None]
